FAERS Safety Report 8391774-6 (Version None)
Quarter: 2012Q2

REPORT INFORMATION
  Report Type: 
  Country: None (occurrence: None)
  Receive Date: 20120525
  Receipt Date: 20120525
  Transmission Date: 20120825
  Serious: No
  Sender: FDA-Public Use
  Company Number: None

PATIENT
  Sex: Female
  Weight: 97.5234 kg

DRUGS (2)
  1. CYMBALTA [Suspect]
     Indication: PAIN
     Dosage: 60 MG 1X
  2. CYMBALTA [Suspect]
     Indication: DEPRESSION
     Dosage: 60 MG 1X

REACTIONS (12)
  - HYPERHIDROSIS [None]
  - WEIGHT INCREASED [None]
  - AMNESIA [None]
  - FATIGUE [None]
  - SUICIDAL IDEATION [None]
  - ABDOMINAL PAIN UPPER [None]
  - FAECES DISCOLOURED [None]
  - BLOOD GLUCOSE INCREASED [None]
  - NAUSEA [None]
  - NIGHTMARE [None]
  - MYALGIA [None]
  - IRRITABILITY [None]
